FAERS Safety Report 5425020-X (Version None)
Quarter: 2007Q3

REPORT INFORMATION
  Report Type: 
  Country: None (occurrence: None)
  Receive Date: 20070822
  Receipt Date: 20070808
  Transmission Date: 20080115
  Serious: Yes (Death)
  Sender: FDA-Public Use
  Company Number: 2007US001860

PATIENT
  Age: 62 Year
  Sex: Male

DRUGS (2)
  1. PROGRAF [Suspect]
     Indication: RENAL TRANSPLANT
     Dosage: 0.5 MG, BID, ORAL
     Route: 048
     Dates: start: 20060202, end: 20070805
  2. CELLCEPT [Concomitant]

REACTIONS (5)
  - CONDITION AGGRAVATED [None]
  - CROHN'S DISEASE [None]
  - ELECTROLYTE IMBALANCE [None]
  - MALABSORPTION [None]
  - REFUSAL OF TREATMENT BY PATIENT [None]
